FAERS Safety Report 8328956-5 (Version None)
Quarter: 2012Q2

REPORT INFORMATION
  Report Type: 
  Country: None (occurrence: None)
  Receive Date: 20120502
  Receipt Date: 20120427
  Transmission Date: 20120825
  Serious: Yes (Other)
  Sender: FDA-Public Use
  Company Number: US-BAYER-2012-041910

PATIENT
  Sex: Female

DRUGS (3)
  1. YASMIN [Suspect]
     Dosage: UNK
     Dates: start: 19970101, end: 20030101
  2. DROSPIRENONE AND ETHINYL ESTRADIOL [Suspect]
     Dosage: UNK
     Dates: start: 19970101, end: 20030101
  3. YAZ [Suspect]
     Dosage: UNK
     Dates: start: 19970101, end: 20030101

REACTIONS (5)
  - GALLBLADDER DISORDER [None]
  - INJURY [None]
  - PAIN [None]
  - GASTRIC ULCER [None]
  - EMOTIONAL DISTRESS [None]
